FAERS Safety Report 9723225 (Version 1)
Quarter: 2013Q4

REPORT INFORMATION
  Report Type: Spontaneous
  Country: US (occurrence: US)
  Receive Date: 20131202
  Receipt Date: 20131202
  Transmission Date: 20140711
  Serious: Yes (Other)
  Sender: FDA-Public Use
  Company Number: US-GILEAD-2008-0016954

PATIENT
  Age: 5 Decade
  Sex: Male

DRUGS (4)
  1. TRUVADA [Suspect]
     Indication: HIV INFECTION
     Dates: start: 2007, end: 2008
  2. REYATAZ [Concomitant]
     Indication: HIV INFECTION
  3. RITONAVIR [Concomitant]
     Indication: HIV INFECTION
  4. EPZICOM [Concomitant]
     Indication: HIV INFECTION

REACTIONS (1)
  - Blood creatinine increased [Recovering/Resolving]
